FAERS Safety Report 9242808 (Version 2)
Quarter: 2013Q2

REPORT INFORMATION
  Report Type: Report from Study
  Country: MX (occurrence: MX)
  Receive Date: 20130419
  Receipt Date: 20130426
  Transmission Date: 20140414
  Serious: Yes (Hospitalization, Other)
  Sender: FDA-Public Use
  Company Number: PHHY2013MX037046

PATIENT
  Age: 72 Year
  Sex: Female

DRUGS (4)
  1. ACLASTA [Suspect]
     Indication: OSTEOPOROSIS
     Dosage: 5 MG/100ML ANNUALLY
     Route: 042
     Dates: start: 20121112
  2. ACLASTA [Suspect]
     Dosage: 5 MG/100ML ANNUALLY
     Route: 042
     Dates: start: 20130408
  3. ADALAT [Concomitant]
     Indication: HYPERTENSION
     Dosage: 3 DF, UNK
     Dates: start: 20130402
  4. CALCIUM [Concomitant]
     Dosage: 3 DF, UNK
     Dates: start: 20130402

REACTIONS (5)
  - Fall [Not Recovered/Not Resolved]
  - Hip fracture [Not Recovered/Not Resolved]
  - Incorrect dose administered [Unknown]
  - Inappropriate schedule of drug administration [Unknown]
  - Pain [Not Recovered/Not Resolved]
